FAERS Safety Report 25803625 (Version 1)
Quarter: 2025Q3

REPORT INFORMATION
  Report Type: Spontaneous
  Country: US (occurrence: US)
  Receive Date: 20250915
  Receipt Date: 20250915
  Transmission Date: 20251021
  Serious: No
  Sender: AMGEN
  Company Number: US-AMGEN-USASP2025179286

PATIENT
  Sex: Male
  Weight: 77.098 kg

DRUGS (1)
  1. ARANESP [Suspect]
     Active Substance: DARBEPOETIN ALFA
     Indication: Chronic kidney disease
     Dosage: 10 MICROGRAM, QWK
     Route: 065
     Dates: start: 202409

REACTIONS (2)
  - Feeling abnormal [Unknown]
  - Dyspnoea [Unknown]
